FAERS Safety Report 25550132 (Version 1)
Quarter: 2025Q3

REPORT INFORMATION
  Report Type: Spontaneous
  Country: US (occurrence: US)
  Receive Date: 20250714
  Receipt Date: 20250714
  Transmission Date: 20251020
  Serious: Yes (Other)
  Sender: FOUNDATION CONSUMER HEALTHCARE, LLC
  Company Number: US-FOUNDATIONCONSUMERHC-2025-US-029978

PATIENT
  Age: 35 Year
  Sex: Female
  Weight: 106.6 kg

DRUGS (1)
  1. PLAN B ONE-STEP [Suspect]
     Active Substance: LEVONORGESTREL
     Indication: Post coital contraception
     Route: 048
     Dates: start: 20250603, end: 20250603

REACTIONS (2)
  - Drug ineffective [Unknown]
  - Pregnancy after post coital contraception [Unknown]

NARRATIVE: CASE EVENT DATE: 20250603
